FAERS Safety Report 10500979 (Version 10)
Quarter: 2017Q3

REPORT INFORMATION
  Report Type: Report from Study
  Country: TW (occurrence: TW)
  Receive Date: 20141007
  Receipt Date: 20170731
  Transmission Date: 20171127
  Serious: Yes (Hospitalization)
  Sender: FDA-Public Use
  Company Number: TW-ROCHE-1470057

PATIENT
  Age: 73 Year
  Sex: Male
  Weight: 64.4 kg

DRUGS (7)
  1. RANIBIZUMAB. [Suspect]
     Active Substance: RANIBIZUMAB
     Indication: AGE-RELATED MACULAR DEGENERATION
     Dosage: DOSE: 10MG/ML
     Route: 050
     Dates: start: 20140715
  2. AVASTIN [Suspect]
     Active Substance: BEVACIZUMAB
     Route: 042
     Dates: start: 20140924
  3. RANIBIZUMAB. [Suspect]
     Active Substance: RANIBIZUMAB
     Route: 050
     Dates: start: 20140812
  4. RANIBIZUMAB. [Suspect]
     Active Substance: RANIBIZUMAB
     Dosage: 10 MG/ML
     Route: 050
     Dates: start: 20141121
  5. RANIBIZUMAB. [Suspect]
     Active Substance: RANIBIZUMAB
     Route: 050
     Dates: start: 20141013
  6. C3F8 [Concomitant]
     Route: 042
     Dates: start: 20140721
  7. AVASTIN [Suspect]
     Active Substance: BEVACIZUMAB
     Indication: PRODUCT USED FOR UNKNOWN INDICATION
     Dosage: RIGHT EYE
     Route: 042
     Dates: start: 20140721

REACTIONS (5)
  - Eye pain [Unknown]
  - Vitreous haemorrhage [Recovered/Resolved]
  - Sensation of foreign body [Unknown]
  - Lacrimation increased [Unknown]
  - Vitreous haemorrhage [Not Recovered/Not Resolved]

NARRATIVE: CASE EVENT DATE: 20140909
